FAERS Safety Report 14379256 (Version 1)
Quarter: 2018Q1

REPORT INFORMATION
  Report Type: Spontaneous
  Country: US (occurrence: US)
  Receive Date: 20180112
  Receipt Date: 20180112
  Transmission Date: 20180509
  Serious: No
  Sender: FDA-Public Use
  Company Number: US-009507513-1801USA003289

PATIENT
  Sex: Male

DRUGS (1)
  1. ZOCOR [Suspect]
     Active Substance: SIMVASTATIN
     Dosage: 5 MG DAILY
     Route: 048

REACTIONS (2)
  - Drug dose omission [Unknown]
  - Circumstance or information capable of leading to medication error [Unknown]
